FAERS Safety Report 7463603-6 (Version None)
Quarter: 2011Q2

REPORT INFORMATION
  Report Type: 
  Country: None (occurrence: None)
  Receive Date: 20110506
  Receipt Date: 20110503
  Transmission Date: 20111010
  Serious: Yes (Other)
  Sender: FDA-Public Use
  Company Number: US-PFIZER INC-2011095326

PATIENT
  Sex: Male
  Weight: 104.31 kg

DRUGS (4)
  1. LYRICA [Suspect]
     Indication: NEUROPATHY PERIPHERAL
  2. NEURONTIN [Suspect]
     Indication: PAIN
     Dosage: 1000 MG, DAILY
  3. LYRICA [Suspect]
     Indication: PAIN
     Dosage: 150 MG, DAILY
     Route: 048
  4. ACETYLSALICYLIC ACID [Concomitant]
     Dosage: UNK

REACTIONS (10)
  - OEDEMA PERIPHERAL [None]
  - FLUID RETENTION [None]
  - SENSORY LOSS [None]
  - JOINT SWELLING [None]
  - PAIN [None]
  - ALOPECIA [None]
  - DRUG INEFFECTIVE [None]
  - WEIGHT INCREASED [None]
  - SLEEP DISORDER [None]
  - SLEEP APNOEA SYNDROME [None]
